FAERS Safety Report 11045115 (Version 1)
Quarter: 2015Q2

REPORT INFORMATION
  Report Type: Spontaneous
  Country: JP (occurrence: JP)
  Receive Date: 20150417
  Receipt Date: 20150417
  Transmission Date: 20150821
  Serious: No
  Sender: FDA-Public Use
  Company Number: PHJP2015JP004604

PATIENT
  Age: 89 Year
  Sex: Male

DRUGS (1)
  1. LAMISIL TAB [Suspect]
     Active Substance: TERBINAFINE HYDROCHLORIDE
     Indication: URINARY TRACT INFECTION FUNGAL
     Dosage: UNK
     Route: 066

REACTIONS (2)
  - Incorrect route of drug administration [Unknown]
  - Product use issue [Unknown]
